FAERS Safety Report 4449934-2 (Version None)
Quarter: 2004Q3

REPORT INFORMATION
  Report Type: 
  Country: None (occurrence: None)
  Receive Date: 20040915
  Receipt Date: 20040823
  Transmission Date: 20050211
  Serious: Yes (Death)
  Sender: FDA-Public Use
  Company Number: JP-GLAXOSMITHKLINE-B0343697A

PATIENT
  Age: 51 Year
  Sex: Male

DRUGS (18)
  1. ZEFIX [Suspect]
     Indication: HEPATITIS B
     Route: 048
     Dates: start: 20010625, end: 20010809
  2. PROGRAF [Suspect]
     Dosage: 1.5MG TWICE PER DAY
     Route: 048
     Dates: start: 20010720, end: 20010809
  3. IMMUNOGOBULIN ANTI HB [Concomitant]
     Route: 042
  4. MEDROL [Concomitant]
     Dosage: 8MG PER DAY
     Route: 048
     Dates: start: 20010720, end: 20010809
  5. CELLCEPT [Concomitant]
     Dosage: 2G PER DAY
     Route: 048
     Dates: start: 20010721, end: 20010809
  6. DIFLUCAN [Concomitant]
     Dosage: 100MG PER DAY
     Route: 048
     Dates: start: 20010720, end: 20010809
  7. FUNGIZONE [Concomitant]
     Dosage: 3ML PER DAY
     Route: 048
     Dates: start: 20010720, end: 20010809
  8. KANAMYCIN [Concomitant]
     Dosage: 45ML PER DAY
     Route: 048
     Dates: start: 20010721, end: 20010809
  9. TAKEPRON [Concomitant]
     Route: 048
     Dates: start: 20010721, end: 20010809
  10. ALLOID G [Concomitant]
     Dosage: 60ML PER DAY
     Route: 048
     Dates: start: 20010722, end: 20010809
  11. URSO [Concomitant]
     Dosage: 1200ML PER DAY
     Route: 048
     Dates: start: 20010712, end: 20010809
  12. EDECRIL [Concomitant]
     Dosage: 750MG PER DAY
     Route: 048
     Dates: start: 20010705, end: 20010809
  13. GASTER [Concomitant]
     Route: 042
     Dates: start: 20010721, end: 20010809
  14. KAYTWO [Concomitant]
     Route: 042
     Dates: start: 20010731, end: 20010809
  15. NEO-MINOPHAGEN C [Concomitant]
     Route: 042
     Dates: start: 20010722, end: 20010809
  16. ELEMENMIC [Concomitant]
     Route: 042
     Dates: start: 20010722, end: 20010809
  17. VITAJECT [Concomitant]
     Route: 042
     Dates: start: 20010721, end: 20010809
  18. NEOAMIYU [Concomitant]
     Route: 042
     Dates: start: 20010805, end: 20010809

REACTIONS (5)
  - ARRHYTHMIA [None]
  - CARDIAC ARREST [None]
  - CARDIAC FAILURE [None]
  - HEPATIC NECROSIS [None]
  - LIVER TRANSPLANT [None]
